FAERS Safety Report 8493752-5 (Version None)
Quarter: 2012Q3

REPORT INFORMATION
  Report Type: 
  Country: None (occurrence: None)
  Receive Date: 20120706
  Receipt Date: 20120629
  Transmission Date: 20120928
  Serious: Yes (Life-Threatening, Hospitalization, Disabling)
  Sender: FDA-Public Use
  Company Number: DE-ABBOTT-12P-062-0938562-00

PATIENT
  Age: 36 Year
  Sex: Male

DRUGS (2)
  1. REYATAZ [Concomitant]
     Indication: HIV INFECTION
     Dates: start: 20120418
  2. RITONAVIR [Suspect]
     Indication: HIV INFECTION
     Route: 048
     Dates: start: 20120418

REACTIONS (4)
  - IMMUNE RECONSTITUTION SYNDROME [None]
  - HYPERBILIRUBINAEMIA [None]
  - ATYPICAL MYCOBACTERIAL INFECTION [None]
  - T-CELL LYMPHOMA [None]
